FAERS Safety Report 9509391 (Version 2)
Quarter: 2013Q4

REPORT INFORMATION
  Report Type: Spontaneous
  Country: US (occurrence: US)
  Receive Date: 20130909
  Receipt Date: 20131008
  Transmission Date: 20140711
  Serious: Yes (Other)
  Sender: FDA-Public Use
  Company Number: US-TEVA-430715USA

PATIENT
  Age: 19 Year
  Sex: Female
  Weight: 83.08 kg

DRUGS (1)
  1. PARAGARD 380A [Suspect]
     Indication: CONTRACEPTION
     Route: 015
     Dates: end: 2013

REACTIONS (5)
  - Vaginal haemorrhage [Recovering/Resolving]
  - Device dislocation [Unknown]
  - Pelvic pain [Recovered/Resolved]
  - Medical device complication [Unknown]
  - Device expulsion [Unknown]
